FAERS Safety Report 7943671 (Version 3)
Quarter: 2014Q1

REPORT INFORMATION
  Report Type: Spontaneous
  Country: US (occurrence: US)
  Receive Date: 20110513
  Receipt Date: 20140128
  Transmission Date: 20141002
  Serious: Yes (Other)
  Sender: FDA-Public Use
  Company Number: US-BAYER-2011-040511

PATIENT
  Age: 29 Year
  Sex: Female
  Weight: 51 kg

DRUGS (11)
  1. YASMIN [Suspect]
     Indication: PREMENSTRUAL DYSPHORIC DISORDER
     Dosage: UNK
     Dates: start: 2004, end: 2006
  2. YASMIN [Suspect]
     Indication: PREMENSTRUAL SYNDROME
     Dosage: UNK
     Dates: start: 200909, end: 201002
  3. YAZ [Suspect]
     Indication: PREMENSTRUAL SYNDROME
     Dosage: UNK
     Dates: start: 2004, end: 2006
  4. YAZ [Suspect]
     Indication: PREMENSTRUAL DYSPHORIC DISORDER
     Dosage: UNK
     Dates: start: 200909, end: 201002
  5. WELLBUTRIN SR [Concomitant]
     Indication: MENTAL DISORDER
     Dosage: UNK
     Dates: start: 2002
  6. LAMICTAL [Concomitant]
     Indication: MENTAL DISORDER
     Dosage: UNK
     Dates: start: 2002
  7. KLONOPIN [Concomitant]
     Indication: MENTAL DISORDER
     Dosage: UNK
     Dates: start: 2002
  8. FIORICET [Concomitant]
     Indication: MIGRAINE
     Dosage: UNK
     Dates: start: 2001
  9. PEPTO-BISMOL [Concomitant]
     Indication: ABDOMINAL PAIN UPPER
     Dosage: UNK
     Dates: start: 2001, end: 2006
  10. ALIMENTARY TRACT AND METABOLISM [Concomitant]
     Indication: ABDOMINAL PAIN UPPER
     Dosage: UNK
     Dates: start: 2001, end: 2006
  11. SENNA [Concomitant]
     Indication: ABDOMINAL PAIN UPPER
     Dosage: UNK
     Dates: start: 2001, end: 2006

REACTIONS (12)
  - Gallbladder disorder [None]
  - Cholecystitis [None]
  - Cholelithiasis [None]
  - Pain [None]
  - Gastric disorder [None]
  - Gastrointestinal disorder [None]
  - Irritable bowel syndrome [None]
  - Abdominal discomfort [None]
  - Weight increased [None]
  - Mood swings [None]
  - Mental disorder [None]
  - Depression [None]
